FAERS Safety Report 6697778-3 (Version None)
Quarter: 2010Q2

REPORT INFORMATION
  Report Type: 
  Country: None (occurrence: None)
  Receive Date: 20100423
  Receipt Date: 20100413
  Transmission Date: 20101027
  Serious: Yes (Hospitalization)
  Sender: FDA-Public Use
  Company Number: PAR_03330_2010

PATIENT
  Age: 77 Year
  Sex: Female
  Weight: 44 kg

DRUGS (10)
  1. ALPRAZOLAM [Suspect]
     Indication: DRUG USE FOR UNKNOWN INDICATION
     Dosage: 0.625 MG, DAILY, ORAL
     Route: 048
     Dates: end: 20091107
  2. CAPTOPRIL (CAPTOPRIL) TABLET [Suspect]
     Indication: DRUG USE FOR UNKNOWN INDICATION
     Dosage: 50 MG, BID, ORAL
     Route: 048
     Dates: start: 20090801, end: 20091107
  3. CARBIDOPA/LEVODOPA (CARBIDOPA, LEVODOPA) TABLET [Suspect]
     Indication: PARKINSON'S DISEASE
     Dosage: 1 DF TID 200-20 MG, ORAL
     Route: 048
     Dates: end: 20091107
  4. HYDROCHLOROTHIAZIDE [Suspect]
     Indication: DRUG USE FOR UNKNOWN INDICATION
     Dosage: 25 MG, BID, ORAL
     Route: 048
     Dates: start: 20090801, end: 20091107
  5. AMOXICILLIN/CLAVULANATE POTASSIUM (AMOXICILLIN TRIHYDRATE, CLAVULANATE [Suspect]
     Indication: DRUG USE FOR UNKNOWN INDICATION
     Dosage: 1000 MG, TID, ORAL
     Route: 048
     Dates: start: 20090801, end: 20091107
  6. PREDNISONE TAB [Suspect]
     Indication: POLYARTHRITIS
     Dosage: 50 MG, DAILY, THEN DOSAGE PROGRESSIVELY DECREASED, ORAL
     Route: 048
     Dates: start: 20090625, end: 20091107
  7. NEBIVOLOL HCL [Suspect]
     Indication: DRUG USE FOR UNKNOWN INDICATION
     Dosage: 5 MG, DAILY, ORAL
     Route: 048
     Dates: end: 20091107
  8. OMEPRAZOLE [Suspect]
     Indication: DRUG USE FOR UNKNOWN INDICATION
     Dosage: 40 MG, DAILY, ORAL
     Route: 048
     Dates: end: 20090801
  9. AMLODIPINE [Suspect]
     Indication: DRUG USE FOR UNKNOWN INDICATION
     Dosage: 5 MG, DAILY, ORAL
     Route: 048
     Dates: end: 20091107
  10. MIRTAZAPINE [Suspect]
     Indication: DRUG USE FOR UNKNOWN INDICATION
     Dosage: 15 MG, DAILY, ORAL
     Route: 048
     Dates: end: 20091107

REACTIONS (24)
  - ANEURYSM [None]
  - ASTHENIA [None]
  - BLOOD CHLORIDE DECREASED [None]
  - BLOOD POTASSIUM DECREASED [None]
  - CHOLESTASIS [None]
  - CUSHING'S SYNDROME [None]
  - DECREASED APPETITE [None]
  - DYSKINESIA [None]
  - FALL [None]
  - GENERAL PHYSICAL CONDITION ABNORMAL [None]
  - HAEMOTHORAX [None]
  - HEPATIC ARTERY ANEURYSM [None]
  - HEPATIC HAEMATOMA [None]
  - HEPATIC PAIN [None]
  - HEPATITIS CHOLESTATIC [None]
  - HEPATOMEGALY [None]
  - HYPONATRAEMIA [None]
  - INFLAMMATION [None]
  - LOSS OF CONSCIOUSNESS [None]
  - OEDEMA PERIPHERAL [None]
  - ORTHOSTATIC HYPOTENSION [None]
  - PARKINSONISM [None]
  - POLYARTERITIS NODOSA [None]
  - RENAL ANEURYSM [None]
